FAERS Safety Report 11854665 (Version 2)
Quarter: 2015Q4

REPORT INFORMATION
  Report Type: Report from Study
  Country: DE (occurrence: DE)
  Receive Date: 20151221
  Receipt Date: 20151228
  Transmission Date: 20160305
  Serious: Yes (Death, Hospitalization)
  Sender: FDA-Public Use
  Company Number: DE-009507513-1512DEU009248

PATIENT
  Age: 40 Year
  Sex: Male
  Weight: 82 kg

DRUGS (15)
  1. PANTOZOL [Concomitant]
     Active Substance: PANTOPRAZOLE SODIUM
     Indication: PROPHYLAXIS AGAINST GASTROINTESTINAL ULCER
     Dosage: UNK
     Dates: start: 20150411
  2. ENTECAVIR. [Concomitant]
     Active Substance: ENTECAVIR
     Indication: CHRONIC HEPATITIS B
     Dosage: UNK
     Dates: start: 20150415
  3. LYRICA [Concomitant]
     Active Substance: PREGABALIN
     Indication: NEURALGIA
     Dosage: UNK
     Dates: start: 20151106
  4. INVANZ [Concomitant]
     Active Substance: ERTAPENEM SODIUM
     Indication: INFECTION PROPHYLAXIS
     Dosage: UNK
     Dates: start: 20151112
  5. ACYCLOVIR. [Concomitant]
     Active Substance: ACYCLOVIR
     Indication: ANTIVIRAL PROPHYLAXIS
     Dosage: UNK
     Dates: start: 20150412
  6. NOVALGIN (ACETAMINOPHEN (+) CAFFEINE (+) PROPYPHENAZONE) [Concomitant]
     Indication: ANALGESIC THERAPY
  7. ALLOPURINOL. [Concomitant]
     Active Substance: ALLOPURINOL
     Indication: PROPHYLAXIS
     Dosage: UNK
     Dates: start: 20151112
  8. KEPINOL [Concomitant]
     Active Substance: SULFAMETHOXAZOLE\TRIMETHOPRIM
     Indication: INFECTION PROPHYLAXIS
     Dosage: UNK
     Dates: start: 20150413
  9. NOVALGIN (ACETAMINOPHEN (+) CAFFEINE (+) PROPYPHENAZONE) [Concomitant]
     Indication: THROMBOSIS
     Dosage: UNK
     Dates: start: 20151111
  10. GAMMA-SECRETASE INHIBITOR (UNSPECIFIED) [Suspect]
     Active Substance: INVESTIGATIONAL PRODUCT
     Indication: PRECURSOR T-LYMPHOBLASTIC LYMPHOMA/LEUKAEMIA RECURRENT
     Dosage: 50 MG, CYCLICAL, THREE TIMES A WEEK FOR A 28 DAY CYCLE
     Route: 048
     Dates: start: 20151112
  11. FLUCONAZOLE. [Concomitant]
     Active Substance: FLUCONAZOLE
     Indication: ANTIFUNGAL PROPHYLAXIS
     Dosage: UNK
     Dates: start: 20150428
  12. TRAMAL LONG [Concomitant]
     Active Substance: TRAMADOL
     Indication: THROMBOSIS
     Dosage: UNK
     Dates: start: 20151111
  13. CLEXANE (ENOXAPARIN SODIUM) [Concomitant]
     Active Substance: ENOXAPARIN SODIUM
     Indication: THROMBOSIS
     Dosage: UNK
     Dates: start: 20151105
  14. DEXAMETHASONE. [Suspect]
     Active Substance: DEXAMETHASONE
     Indication: PRECURSOR T-LYMPHOBLASTIC LYMPHOMA/LEUKAEMIA RECURRENT
     Dosage: 24 MG, CYCLICAL, DAY ONE THROUGH FIVE EVERY OTHER WEEK
     Route: 048
     Dates: start: 20151112
  15. TRAMAL LONG [Concomitant]
     Active Substance: TRAMADOL
     Indication: ANALGESIC THERAPY

REACTIONS (4)
  - Pyrexia [Recovering/Resolving]
  - Infection [Recovering/Resolving]
  - Cytomegalovirus test positive [Unknown]
  - Lung infection [Fatal]

NARRATIVE: CASE EVENT DATE: 20151117
